FAERS Safety Report 7819127-7 (Version None)
Quarter: 2011Q4

REPORT INFORMATION
  Report Type: 
  Country: None (occurrence: None)
  Receive Date: 20111018
  Receipt Date: 20111010
  Transmission Date: 20120403
  Serious: Yes (Hospitalization)
  Sender: FDA-Public Use
  Company Number: PHHY2011US83511

PATIENT
  Age: 18 Year
  Sex: Male

DRUGS (1)
  1. TRAMADOL HCL [Suspect]

REACTIONS (11)
  - OVERDOSE [None]
  - MULTI-ORGAN FAILURE [None]
  - CONVULSION [None]
  - BLOOD PRESSURE INCREASED [None]
  - BODY TEMPERATURE DECREASED [None]
  - RHABDOMYOLYSIS [None]
  - URINE OUTPUT DECREASED [None]
  - TENDERNESS [None]
  - DRUG ABUSE [None]
  - RENAL FAILURE ACUTE [None]
  - TOXICITY TO VARIOUS AGENTS [None]
